FAERS Safety Report 8914731 (Version 2)
Quarter: 2012Q4

REPORT INFORMATION
  Report Type: 
  Country: GB (occurrence: GB)
  Receive Date: 20121119
  Receipt Date: 20121204
  Transmission Date: 20130627
  Serious: Yes (Death, Hospitalization)
  Sender: FDA-Public Use
  Company Number: GB-TEVA-369548ISR

PATIENT
  Age: 70 Year
  Sex: Female
  Weight: 82.6 kg

DRUGS (3)
  1. RISPERIDONE [Suspect]
  2. MIRTAZAPINE [Interacting]
  3. DIAZEPAM [Interacting]

REACTIONS (14)
  - Neuroleptic malignant syndrome [Fatal]
  - Drug interaction [Not Recovered/Not Resolved]
  - Sedation [Not Recovered/Not Resolved]
  - Dehydration [Not Recovered/Not Resolved]
  - Pyrexia [Not Recovered/Not Resolved]
  - Muscle rigidity [Not Recovered/Not Resolved]
  - Urinary tract infection [Not Recovered/Not Resolved]
  - Swelling [Not Recovered/Not Resolved]
  - Aphagia [Not Recovered/Not Resolved]
  - Paralysis [Not Recovered/Not Resolved]
  - Cholecystitis [Not Recovered/Not Resolved]
  - Catatonia [Not Recovered/Not Resolved]
  - Coma [Not Recovered/Not Resolved]
  - Bedridden [Not Recovered/Not Resolved]
